FAERS Safety Report 7082670-5 (Version None)
Quarter: 2010Q4

REPORT INFORMATION
  Report Type: 
  Country: None (occurrence: None)
  Receive Date: 20101104
  Receipt Date: 20101101
  Transmission Date: 20110411
  Serious: Yes (Other)
  Sender: FDA-Public Use
  Company Number: US-AMGEN-USASP2010002685

PATIENT

DRUGS (6)
  1. PROLIA [Suspect]
     Indication: OSTEOPOROSIS POSTMENOPAUSAL
     Dates: start: 20101021
  2. BENICAR [Concomitant]
  3. METOPROLOL [Concomitant]
  4. TOPIRAMATE [Concomitant]
  5. OXYCODONE HCL [Concomitant]
  6. FUROSEMIDE [Concomitant]

REACTIONS (6)
  - ERYTHEMA [None]
  - EYE SWELLING [None]
  - HYPERSENSITIVITY [None]
  - PAIN OF SKIN [None]
  - SKIN BURNING SENSATION [None]
  - SKIN EXFOLIATION [None]
